FAERS Safety Report 10279710 (Version 1)
Quarter: 2014Q3

REPORT INFORMATION
  Report Type: Spontaneous
  Country: BE (occurrence: BE)
  Receive Date: 20140707
  Receipt Date: 20140707
  Transmission Date: 20150326
  Serious: Yes (Other)
  Sender: FDA-Public Use
  Company Number: BE-JNJFOC-20140702692

PATIENT
  Sex: Male

DRUGS (9)
  1. RIVAROXABAN [Suspect]
     Active Substance: RIVAROXABAN
     Indication: BLOOD FIBRINOGEN DECREASED
     Route: 048
     Dates: start: 201302, end: 201306
  2. RIVAROXABAN [Suspect]
     Active Substance: RIVAROXABAN
     Indication: DISSEMINATED INTRAVASCULAR COAGULATION
     Route: 048
     Dates: start: 201302, end: 201306
  3. RIVAROXABAN [Suspect]
     Active Substance: RIVAROXABAN
     Indication: DISSEMINATED INTRAVASCULAR COAGULATION
     Route: 048
     Dates: start: 201209, end: 201302
  4. RIVAROXABAN [Suspect]
     Active Substance: RIVAROXABAN
     Indication: DISSEMINATED INTRAVASCULAR COAGULATION
     Route: 048
     Dates: start: 201302, end: 201306
  5. RIVAROXABAN [Suspect]
     Active Substance: RIVAROXABAN
     Indication: BLOOD FIBRINOGEN DECREASED
     Route: 048
     Dates: start: 201306
  6. RIVAROXABAN [Suspect]
     Active Substance: RIVAROXABAN
     Indication: DISSEMINATED INTRAVASCULAR COAGULATION
     Route: 048
     Dates: start: 201306
  7. RIVAROXABAN [Suspect]
     Active Substance: RIVAROXABAN
     Indication: DISSEMINATED INTRAVASCULAR COAGULATION
     Route: 048
     Dates: start: 201209, end: 201302
  8. RIVAROXABAN [Suspect]
     Active Substance: RIVAROXABAN
     Indication: DISSEMINATED INTRAVASCULAR COAGULATION
     Route: 048
     Dates: start: 201306
  9. RIVAROXABAN [Suspect]
     Active Substance: RIVAROXABAN
     Indication: BLOOD FIBRINOGEN DECREASED
     Route: 048
     Dates: start: 201209, end: 201302

REACTIONS (3)
  - Spontaneous haemorrhage [Unknown]
  - Blood fibrinogen decreased [Unknown]
  - Off label use [Unknown]
